FAERS Safety Report 14515739 (Version 5)
Quarter: 2018Q4

REPORT INFORMATION
  Report Type: Report from Study
  Country: US (occurrence: US)
  Receive Date: 20180211
  Receipt Date: 20181116
  Transmission Date: 20190204
  Serious: Yes (Hospitalization, Other)
  Sender: FDA-Public Use
  Company Number: PHEH2018US005062

PATIENT
  Age: 51 Year
  Sex: Female

DRUGS (1)
  1. GILENYA [Suspect]
     Active Substance: FINGOLIMOD HYDROCHLORIDE
     Indication: MULTIPLE SCLEROSIS
     Dosage: 0.5 MG, QD
     Route: 048
     Dates: start: 20170911, end: 20180428

REACTIONS (8)
  - Hypoaesthesia [Unknown]
  - Sinusitis [Recovering/Resolving]
  - Influenza [Unknown]
  - Leukopenia [Unknown]
  - Trigeminal neuralgia [Unknown]
  - Ear pain [Not Recovered/Not Resolved]
  - Hypotension [Unknown]
  - Influenza A virus test positive [Recovered/Resolved]

NARRATIVE: CASE EVENT DATE: 20180121
